FAERS Safety Report 8373438-8 (Version None)
Quarter: 2012Q2

REPORT INFORMATION
  Report Type: 
  Country: None (occurrence: None)
  Receive Date: 20120521
  Receipt Date: 20111215
  Transmission Date: 20120825
  Serious: Yes (Hospitalization)
  Sender: FDA-Public Use
  Company Number: US-TEVA-2011006247

PATIENT
  Sex: Male
  Weight: 89 kg

DRUGS (2)
  1. BENDAMUSTINE HYDROCHLORIDE [Suspect]
     Indication: NON-HODGKIN'S LYMPHOMA
     Route: 042
     Dates: start: 20111130, end: 20111201
  2. OBINUTUZUMAB [Suspect]
     Indication: NON-HODGKIN'S LYMPHOMA
     Dosage: 1000 MILLIGRAM;
     Route: 042
     Dates: start: 20111130, end: 20111130

REACTIONS (2)
  - THROMBOCYTOPENIA [None]
  - TUMOUR LYSIS SYNDROME [None]
